FAERS Safety Report 22055058 (Version 2)
Quarter: 2023Q4

REPORT INFORMATION
  Report Type: Spontaneous
  Country: DE (occurrence: DE)
  Receive Date: 20230302
  Receipt Date: 20231208
  Transmission Date: 20240110
  Serious: Yes (Death, Other)
  Sender: FDA-Public Use
  Company Number: DE-TAKEDA-2023TUS021270

PATIENT
  Age: 93 Year
  Sex: Female
  Weight: 42 kg

DRUGS (10)
  1. PANTOPRAZOLE [Suspect]
     Active Substance: PANTOPRAZOLE
     Dosage: UNK
     Route: 065
     Dates: start: 20190802
  2. PANTOPRAZOLE [Suspect]
     Active Substance: PANTOPRAZOLE
     Dosage: UNK
     Route: 065
     Dates: start: 20190802
  3. SUPRARENIN [Concomitant]
     Active Substance: EPINEPHRINE
     Dosage: 1 MILLIGRAM, TID
     Dates: start: 20190802
  4. EPINEPHRINE HYDROCHLORIDE [Concomitant]
     Active Substance: EPINEPHRINE HYDROCHLORIDE
     Dosage: 10 MICROGRAM, TID
     Dates: start: 20190802
  5. MIDAZOLAM [Concomitant]
     Active Substance: MIDAZOLAM
     Indication: Anaesthesia
     Dosage: 1 MILLIGRAM
     Dates: start: 20190802
  6. MIDAZOLAM [Concomitant]
     Active Substance: MIDAZOLAM
     Indication: Stupor
  7. KETAMINE [Concomitant]
     Active Substance: KETAMINE
     Indication: Anaesthesia
     Dosage: UNK
     Dates: start: 20190802
  8. KETAMINE [Concomitant]
     Active Substance: KETAMINE
     Indication: Stupor
  9. AMIODARONE [Concomitant]
     Active Substance: AMIODARONE
     Dosage: UNK
     Dates: start: 20190802
  10. SULTAMICILLIN TOSYLATE [Concomitant]
     Active Substance: SULTAMICILLIN TOSYLATE
     Dosage: UNK

REACTIONS (2)
  - Poisoning [Fatal]
  - Cardiac failure [Fatal]

NARRATIVE: CASE EVENT DATE: 20190802
